FAERS Safety Report 13872893 (Version 1)
Quarter: 2017Q3

REPORT INFORMATION
  Report Type: Spontaneous
  Country: US (occurrence: US)
  Receive Date: 20170816
  Receipt Date: 20170816
  Transmission Date: 20171127
  Serious: No
  Sender: FDA-Public Use
  Company Number: US-TARO-2016TAR00735

PATIENT
  Age: 68 Year
  Sex: Male
  Weight: 68.27 kg

DRUGS (1)
  1. TERBINAFINE. [Suspect]
     Active Substance: TERBINAFINE
     Indication: PROPHYLAXIS
     Dosage: UNK, 2X/DAY
     Dates: start: 20160820, end: 20160829

REACTIONS (2)
  - Dry skin [Unknown]
  - Skin fissures [Unknown]

NARRATIVE: CASE EVENT DATE: 20160820
